FAERS Safety Report 16035299 (Version 1)
Quarter: 2019Q1

REPORT INFORMATION
  Report Type: Spontaneous
  Country: US (occurrence: US)
  Receive Date: 20190305
  Receipt Date: 20190305
  Transmission Date: 20190418
  Serious: No
  Sender: FDA-Public Use
  Company Number: US-SA-2019SA057725

PATIENT
  Age: 6 Year
  Sex: Female

DRUGS (2)
  1. LANTUS [Suspect]
     Active Substance: INSULIN GLARGINE
     Indication: TYPE 1 DIABETES MELLITUS
     Dosage: UNK UNK, QD
  2. APIDRA [Suspect]
     Active Substance: INSULIN GLULISINE

REACTIONS (2)
  - Product storage error [Unknown]
  - Expired product administered [Unknown]
